FAERS Safety Report 5637556-7 (Version None)
Quarter: 2008Q1

REPORT INFORMATION
  Report Type: 
  Country: None (occurrence: None)
  Receive Date: 20080219
  Receipt Date: 20080205
  Transmission Date: 20080703
  Serious: Yes (Other)
  Sender: FDA-Public Use
  Company Number: SPV1-2008-00233

PATIENT
  Sex: Male

DRUGS (1)
  1. ADDERALL XR 30 [Suspect]

REACTIONS (4)
  - DRUG ABUSE [None]
  - FEELING ABNORMAL [None]
  - OFF LABEL USE [None]
  - PAIN [None]
